FAERS Safety Report 18868721 (Version 2)
Quarter: 2021Q1

REPORT INFORMATION
  Report Type: Spontaneous
  Country: US (occurrence: US)
  Receive Date: 20210209
  Receipt Date: 20210223
  Transmission Date: 20210420
  Serious: No
  Sender: FDA-Public Use
  Company Number: US-IPSEN BIOPHARMACEUTICALS, INC.-2021-02857

PATIENT
  Age: 49 Year
  Sex: Female
  Weight: 57.6 kg

DRUGS (4)
  1. DYSPORT [Suspect]
     Active Substance: ABOBOTULINUMTOXINA
     Indication: SKIN WRINKLING
  2. DYSPORT [Suspect]
     Active Substance: ABOBOTULINUMTOXINA
     Indication: SKIN WRINKLING
  3. DYSPORT [Suspect]
     Active Substance: ABOBOTULINUMTOXINA
     Indication: OFF LABEL USE
  4. DYSPORT [Suspect]
     Active Substance: ABOBOTULINUMTOXINA
     Indication: SKIN WRINKLING
     Dosage: 120 IU (GLABELLA 50 IU, FOREHEAD 30 IU AND EYES 20 IU EACH)
     Route: 030
     Dates: start: 20210124, end: 20210124

REACTIONS (7)
  - Nausea [Unknown]
  - Facial pain [Recovering/Resolving]
  - Off label use [Unknown]
  - Injection site mass [Unknown]
  - Injection site pain [Recovering/Resolving]
  - Headache [Unknown]
  - Product use issue [Unknown]

NARRATIVE: CASE EVENT DATE: 202101
